FAERS Safety Report 9605072 (Version 10)
Quarter: 2015Q1

REPORT INFORMATION
  Report Type: Spontaneous
  Country: US (occurrence: US)
  Receive Date: 20131008
  Receipt Date: 20150120
  Transmission Date: 20150721
  Serious: Yes (Hospitalization, Other)
  Sender: FDA-Public Use
  Company Number: US-PFIZER INC-2013285059

PATIENT
  Age: 11 Year
  Sex: Male

DRUGS (2)
  1. ADVIL [Suspect]
     Active Substance: IBUPROFEN
     Indication: HEADACHE
     Dosage: 200 MG, UNK
     Route: 048
     Dates: start: 20070418
  2. OMNICEF [Concomitant]
     Active Substance: CEFDINIR
     Indication: SINUSITIS
     Dosage: UNK
     Dates: start: 20070418

REACTIONS (5)
  - Glucose urine present [Unknown]
  - Stevens-Johnson syndrome [Recovering/Resolving]
  - Urobilinogen urine increased [Unknown]
  - Toxic epidermal necrolysis [Unknown]
  - Blood glucose increased [Unknown]

NARRATIVE: CASE EVENT DATE: 20070419
